FAERS Safety Report 8296355-0 (Version None)
Quarter: 2012Q2

REPORT INFORMATION
  Report Type: 
  Country: None (occurrence: None)
  Receive Date: 20120418
  Receipt Date: 20120412
  Transmission Date: 20120825
  Serious: Yes (Hospitalization)
  Sender: FDA-Public Use
  Company Number: IE-MEDIMMUNE-MEDI-0014668

PATIENT
  Sex: Female

DRUGS (6)
  1. FUROSEMIDE SODIUM [Concomitant]
  2. FERROUS SULFATE TAB [Concomitant]
  3. SYNAGIS [Suspect]
     Indication: HEART DISEASE CONGENITAL
     Route: 030
     Dates: start: 20111004, end: 20111004
  4. CAPTIPRIL [Concomitant]
  5. SILDENAFIL [Concomitant]
  6. RANITIDINE HCL [Concomitant]

REACTIONS (1)
  - GASTROOESOPHAGEAL REFLUX DISEASE [None]
